FAERS Safety Report 9783754 (Version 1)
Quarter: 2013Q4

REPORT INFORMATION
  Report Type: Spontaneous
  Country: GB (occurrence: None)
  Receive Date: 20131223
  Receipt Date: 20131223
  Transmission Date: 20140711
  Serious: Yes (Other)
  Sender: FDA-Public Use
  Company Number: AUR-APL-2013-10563

PATIENT
  Age: 60 Year
  Sex: Male

DRUGS (1)
  1. TAMSULOSIN (TAMSULOSIN) [Suspect]
     Indication: BENIGN PROSTATIC HYPERPLASIA

REACTIONS (7)
  - Benign prostatic hyperplasia [None]
  - Condition aggravated [None]
  - Urinary hesitation [None]
  - Urinary incontinence [None]
  - Dysuria [None]
  - No therapeutic response [None]
  - Prostatic operation [None]
